FAERS Safety Report 11693303 (Version 1)
Quarter: 2015Q4

REPORT INFORMATION
  Report Type: Spontaneous
  Country: CN (occurrence: CN)
  Receive Date: 20151103
  Receipt Date: 20151103
  Transmission Date: 20160304
  Serious: Yes (Hospitalization, Other)
  Sender: FDA-Public Use
  Company Number: CN-APOTEX-2015AP013933

PATIENT
  Age: 76 Year
  Sex: Male
  Weight: 50 kg

DRUGS (2)
  1. PAXIL [Suspect]
     Active Substance: PAROXETINE HYDROCHLORIDE
     Indication: SOCIAL PHOBIA
     Dosage: 1 UNK, UNK
     Route: 065
     Dates: start: 2003
  2. PAXIL [Suspect]
     Active Substance: PAROXETINE HYDROCHLORIDE
     Indication: ANXIETY
     Dosage: 20 MG, UNK
     Route: 048
     Dates: start: 2002

REACTIONS (3)
  - Prostatitis [Recovering/Resolving]
  - Drug ineffective [Unknown]
  - Hepatic cancer [Recovered/Resolved]

NARRATIVE: CASE EVENT DATE: 201104
